FAERS Safety Report 10145664 (Version 1)
Quarter: 2014Q2

REPORT INFORMATION
  Report Type: Spontaneous
  Country: US (occurrence: US)
  Receive Date: 20140501
  Receipt Date: 20140501
  Transmission Date: 20141212
  Serious: No
  Sender: FDA-Public Use
  Company Number: US-ABBVIE-14P-163-1205005-00

PATIENT
  Age: 20 Year
  Sex: Male
  Weight: 77.6 kg

DRUGS (3)
  1. CREON 24 [Suspect]
     Indication: PANCREATITIS CHRONIC
     Dosage: 3 TO 4 CAPSULES WITH MEALS AND 1 TO 2 CAPSULES WITH SNACKS
     Dates: start: 201301
  2. OXYCODONE [Concomitant]
     Indication: PRODUCT USED FOR UNKNOWN INDICATION
  3. PRILOSEC [Concomitant]
     Indication: PRODUCT USED FOR UNKNOWN INDICATION

REACTIONS (5)
  - Syncope [Not Recovered/Not Resolved]
  - Dizziness [Not Recovered/Not Resolved]
  - Fall [Not Recovered/Not Resolved]
  - Muscle spasms [Not Recovered/Not Resolved]
  - Drug administration error [Recovered/Resolved]
